FAERS Safety Report 17403322 (Version 1)
Quarter: 2020Q1

REPORT INFORMATION
  Report Type: Spontaneous
  Country: US (occurrence: US)
  Receive Date: 20200211
  Receipt Date: 20200211
  Transmission Date: 20200409
  Serious: No
  Sender: FDA-Public Use
  Company Number: US-PERRIGO-19US016842

PATIENT
  Age: 71 Year
  Sex: Female

DRUGS (2)
  1. TRETINOIN. [Suspect]
     Active Substance: TRETINOIN
     Indication: ACNE
     Dosage: 1 APPLICATION, UNK
     Route: 061
     Dates: start: 201907
  2. TRETINOIN. [Suspect]
     Active Substance: TRETINOIN
     Indication: SEBORRHOEA

REACTIONS (5)
  - Application site exfoliation [Unknown]
  - Application site burn [Unknown]
  - Application site erythema [Unknown]
  - Application site erosion [Unknown]
  - Off label use [Unknown]

NARRATIVE: CASE EVENT DATE: 2019
